FAERS Safety Report 20767492 (Version 1)
Quarter: 2022Q2

REPORT INFORMATION
  Report Type: Spontaneous
  Country: US (occurrence: US)
  Receive Date: 20220429
  Receipt Date: 20220429
  Transmission Date: 20220721
  Serious: No
  Sender: FDA-Public Use
  Company Number: US-SA-SAC20220428000190

PATIENT
  Sex: Male

DRUGS (2)
  1. DUPIXENT [Suspect]
     Active Substance: DUPILUMAB
     Indication: Dermatitis atopic
     Dosage: UNK
     Route: 058
     Dates: start: 20220214
  2. DUPIXENT [Suspect]
     Active Substance: DUPILUMAB
     Indication: Asthma

REACTIONS (4)
  - Wheezing [Not Recovered/Not Resolved]
  - Sinusitis [Not Recovered/Not Resolved]
  - Illness [Not Recovered/Not Resolved]
  - Therapeutic product effect delayed [Unknown]

NARRATIVE: CASE EVENT DATE: 20220301
